FAERS Safety Report 6522005-7 (Version None)
Quarter: 2009Q4

REPORT INFORMATION
  Report Type: 
  Country: None (occurrence: None)
  Receive Date: 20091214
  Receipt Date: 20090721
  Transmission Date: 20100525
  Serious: Yes (Disabling)
  Sender: FDA-Public Use
  Company Number: 645798

PATIENT
  Age: 56 Year
  Sex: Female
  Weight: 78.5 kg

DRUGS (6)
  1. PEGASYS [Suspect]
     Indication: HEPATITIS C
     Dosage: 180 UG 1 PER 1 WEEK SUBCUTANEOUS
     Route: 058
     Dates: start: 20090327, end: 20090625
  2. RIBAVIRIN [Suspect]
     Indication: HEPATITIS C
     Dosage: 1200 MG DAILY ORAL
     Route: 048
     Dates: start: 20090327, end: 20090625
  3. MAXALT [Concomitant]
  4. ATENOLOL [Concomitant]
  5. TOPAMAX [Concomitant]
  6. CALAN (*VERAPAMIL/*VINPOCETINE) [Concomitant]

REACTIONS (2)
  - DEAFNESS UNILATERAL [None]
  - MIGRAINE [None]
